FAERS Safety Report 9475944 (Version 1)
Quarter: 2013Q3

REPORT INFORMATION
  Report Type: Spontaneous
  Country: US (occurrence: US)
  Receive Date: 20130826
  Receipt Date: 20130826
  Transmission Date: 20140515
  Serious: Yes (Other)
  Sender: FDA-Public Use
  Company Number: US-BAYER-2013-102547

PATIENT
  Age: 27 Year
  Sex: Female

DRUGS (14)
  1. YAZ [Suspect]
  2. DARVOCET [Concomitant]
  3. IBUPROFEN [Concomitant]
  4. PERCOCET [Concomitant]
     Dosage: AS  NEEDED
  5. ANCEF [Concomitant]
  6. VERSED [Concomitant]
  7. FENTANYL [Concomitant]
  8. ZOFRAN [Concomitant]
  9. PROPOFOL [Concomitant]
  10. PROTONIX [Concomitant]
  11. FLUTICASONE [Concomitant]
  12. OXYCODONE/APAP [Concomitant]
  13. MORPHINE [Concomitant]
  14. VICODIN [Concomitant]
     Indication: ARTHRALGIA
     Dosage: AS NEEDED

REACTIONS (1)
  - Deep vein thrombosis [Recovered/Resolved]
